FAERS Safety Report 17426436 (Version 2)
Quarter: 2020Q1

REPORT INFORMATION
  Report Type: Spontaneous
  Country: BR (occurrence: BR)
  Receive Date: 20200217
  Receipt Date: 20200220
  Transmission Date: 20200409
  Serious: Yes (Other)
  Sender: FDA-Public Use
  Company Number: BR-EMD SERONO-9145708

PATIENT
  Sex: Female

DRUGS (2)
  1. GLIFAGE [Suspect]
     Active Substance: METFORMIN HYDROCHLORIDE
     Dosage: NEW FORMAT
     Route: 048
  2. GLIFAGE [Suspect]
     Active Substance: METFORMIN HYDROCHLORIDE
     Indication: TYPE 2 DIABETES MELLITUS
     Dosage: OLD FORMAT
     Route: 048

REACTIONS (9)
  - Drug ineffective [Unknown]
  - Blood glucose increased [Unknown]
  - Choking [Unknown]
  - Fatigue [Unknown]
  - Product use complaint [Unknown]
  - Dyspnoea [Unknown]
  - Product shape issue [Unknown]
  - Wrong technique in product usage process [Unknown]
  - Foreign body in respiratory tract [Unknown]
